FAERS Safety Report 10023487 (Version 1)
Quarter: 2014Q1

REPORT INFORMATION
  Report Type: Spontaneous
  Country: US (occurrence: US)
  Receive Date: 20140320
  Receipt Date: 20140320
  Transmission Date: 20141002
  Serious: No
  Sender: FDA-Public Use
  Company Number: US-SHIRE-US201400354

PATIENT
  Sex: 0

DRUGS (2)
  1. VYVANSE [Suspect]
     Indication: ABDOMINAL PAIN
     Dosage: UNK UNK, 1X/DAY:QD (TWO 70 MG IN THE MORNING)
     Route: 048
  2. VYVANSE [Suspect]
     Indication: ATTENTION DEFICIT/HYPERACTIVITY DISORDER
     Dosage: 70 MG, AS REQ^D (70 MG IN THE AFTERNOON PRN)
     Route: 048

REACTIONS (6)
  - Hypersomnia [Unknown]
  - Prescribed overdose [Unknown]
  - Drug prescribing error [Unknown]
  - Off label use [Unknown]
  - Drug ineffective [Unknown]
  - Drug dose omission [Unknown]
